FAERS Safety Report 4693782-5 (Version None)
Quarter: 2005Q2

REPORT INFORMATION
  Report Type: 
  Country: None (occurrence: None)
  Receive Date: 20050616
  Receipt Date: 20050603
  Transmission Date: 20051028
  Serious: Yes (Other)
  Sender: FDA-Public Use
  Company Number: 2005077426

PATIENT
  Age: 55 Year
  Sex: 0
  Weight: 50 kg

DRUGS (7)
  1. VORICONAZOLE (VORICONAZOLE) [Suspect]
     Indication: ASPERGILLOSIS
     Dosage: 600 MG (300 MG, 3 IN 1 D), ORAL
     Route: 048
     Dates: start: 20050123, end: 20050126
  2. LEVOFLOXACIN [Concomitant]
  3. CLARITHROMYCIN [Concomitant]
  4. DIHYDROCODEINE (DIHYDROCODEINE) [Concomitant]
  5. ACYCLOVIR [Concomitant]
  6. LANSOPRAZOLE [Concomitant]
  7. MST CONTINUS ^ASTA MEDICA^ (MORPHINE SULFATE) [Concomitant]

REACTIONS (3)
  - DELUSION [None]
  - HALLUCINATION, VISUAL [None]
  - PARANOIA [None]
